FAERS Safety Report 4837027-1 (Version None)
Quarter: 2005Q4

REPORT INFORMATION
  Report Type: 
  Country: None (occurrence: None)
  Receive Date: 20051121
  Receipt Date: 20051107
  Transmission Date: 20060501
  Serious: Yes (Hospitalization, Other)
  Sender: FDA-Public Use
  Company Number: HQWYE441107NOV05

PATIENT
  Age: 53 Year
  Sex: Male

DRUGS (4)
  1. CORDARONE [Suspect]
     Indication: ARRHYTHMIA
     Dosage: 100 MG 1X PER 1 DAY ORAL
     Route: 048
  2. CORDARONE [Suspect]
     Indication: ATRIAL FIBRILLATION
     Dosage: 100 MG 1X PER 1 DAY ORAL
     Route: 048
  3. PREVISCAN 9FLUNIDIONE) [Concomitant]
  4. POTASSIUM CHLORIDE [Concomitant]

REACTIONS (5)
  - AMNESIA [None]
  - DRUG INTERACTION [None]
  - ELECTROCARDIOGRAM T WAVE INVERSION [None]
  - SINUS BRADYCARDIA [None]
  - URINARY INCONTINENCE [None]
